FAERS Safety Report 18203108 (Version 1)
Quarter: 2020Q3

REPORT INFORMATION
  Report Type: Spontaneous
  Country: CA (occurrence: CA)
  Receive Date: 20200827
  Receipt Date: 20200827
  Transmission Date: 20201103
  Serious: Yes (Life-Threatening, Hospitalization)
  Sender: FDA-Public Use
  Company Number: CA-TEVA-2020-CA-1817822

PATIENT
  Age: 14 Year
  Sex: Male
  Weight: 52 kg

DRUGS (16)
  1. IFOSFAMIDE FOR INJECTION, USP [Suspect]
     Active Substance: IFOSFAMIDE
     Indication: OSTEOSARCOMA
     Route: 042
  2. ACETAMINOPHEN. [Concomitant]
     Active Substance: ACETAMINOPHEN
  3. HEPARIN CALCIUM [Concomitant]
     Active Substance: HEPARIN CALCIUM
  4. ETOPOSIDE. [Suspect]
     Active Substance: ETOPOSIDE
     Indication: OSTEOSARCOMA
     Route: 042
  5. FILGRASTIM [Concomitant]
     Active Substance: FILGRASTIM
  6. METOCLOPRAMIDE. [Concomitant]
     Active Substance: METOCLOPRAMIDE
  7. DEXAMETHASONE. [Concomitant]
     Active Substance: DEXAMETHASONE
  8. LANSOPRAZOLE. [Concomitant]
     Active Substance: LANSOPRAZOLE
  9. PENTAMIDINE ISETHIONATE INJ 300MG/VIAL BP [Concomitant]
  10. MESNA. [Concomitant]
     Active Substance: MESNA
  11. MORPHINE [Concomitant]
     Active Substance: MORPHINE
  12. POLYETHYLENE GLYCOL [Concomitant]
     Active Substance: POLYETHYLENE GLYCOLS
  13. CALCIUM [Concomitant]
     Active Substance: CALCIUM
  14. DIMENHYDRINATE. [Concomitant]
     Active Substance: DIMENHYDRINATE
  15. MELATONIN [Concomitant]
     Active Substance: MELATONIN
  16. ONDANSETRON [Concomitant]
     Active Substance: ONDANSETRON

REACTIONS (1)
  - Febrile neutropenia [Unknown]
